FAERS Safety Report 21232886 (Version 1)
Quarter: 2022Q3

REPORT INFORMATION
  Report Type: Spontaneous
  Country: US (occurrence: US)
  Receive Date: 20220819
  Receipt Date: 20220819
  Transmission Date: 20221026
  Serious: Yes (Hospitalization)
  Sender: FDA-Public Use
  Company Number: US-PFIZER INC-PV202200045671

PATIENT
  Age: 96 Year
  Sex: Female
  Weight: 51.1 kg

DRUGS (1)
  1. LEVOTHYROXINE SODIUM [Suspect]
     Active Substance: LEVOTHYROXINE SODIUM
     Dosage: 50 UG, DAILY
     Route: 048

REACTIONS (3)
  - Loss of consciousness [Recovered/Resolved]
  - Syncope [Recovered/Resolved]
  - Aortic stenosis [Unknown]
